FAERS Safety Report 5493054-5 (Version None)
Quarter: 2007Q4

REPORT INFORMATION
  Report Type: 
  Country: None (occurrence: None)
  Receive Date: 20071023
  Receipt Date: 20071012
  Transmission Date: 20080405
  Serious: Yes (Death, Hospitalization)
  Sender: FDA-Public Use
  Company Number: NL-JNJFOC-20070802307

PATIENT
  Sex: Male

DRUGS (10)
  1. INFLIXIMAB, RECOMBINANT [Suspect]
     Route: 042
  2. INFLIXIMAB, RECOMBINANT [Suspect]
     Indication: IDIOPATHIC PULMONARY FIBROSIS
     Route: 042
  3. AZATHIOPINE [Concomitant]
     Route: 048
  4. FLUIMUCIL [Concomitant]
     Route: 048
  5. PANTOPRAZOLE SODIUM [Concomitant]
     Route: 048
  6. DIDRONEL [Concomitant]
     Route: 048
  7. ATENOLOL [Concomitant]
     Route: 048
  8. PARACETAMOL [Concomitant]
     Route: 048
  9. PREDNISON [Concomitant]
     Route: 048
  10. PREDNISON [Concomitant]
     Route: 048

REACTIONS (3)
  - BRONCHOPULMONARY ASPERGILLOSIS [None]
  - IDIOPATHIC PULMONARY FIBROSIS [None]
  - LUNG INFECTION [None]
